FAERS Safety Report 23526903 (Version 1)
Quarter: 2024Q1

REPORT INFORMATION
  Report Type: Spontaneous
  Country: KR (occurrence: KR)
  Receive Date: 20240215
  Receipt Date: 20240215
  Transmission Date: 20240410
  Serious: Yes (Other)
  Sender: FDA-Public Use
  Company Number: KR-OPELLA-2024OHG004615

PATIENT
  Age: 52 Year
  Sex: Female

DRUGS (2)
  1. XYZAL [Suspect]
     Active Substance: LEVOCETIRIZINE DIHYDROCHLORIDE
     Indication: Dermatitis contact
     Dosage: 0.5 DOSAGE FORM 0.5 DAILY?DOSE FORM: FILM-COATED TABLET
     Route: 065
     Dates: start: 20210316
  2. BEPOTASTINE BESYLATE [Suspect]
     Active Substance: BEPOTASTINE BESYLATE
     Indication: Dermatitis contact
     Dosage: 1 DOSAGE FORM, 2X/DAY (BID)
     Route: 065
     Dates: start: 20210316

REACTIONS (2)
  - Uterine haemorrhage [Unknown]
  - Off label use [Unknown]

NARRATIVE: CASE EVENT DATE: 20210316
